FAERS Safety Report 8809680 (Version 1)
Quarter: 2012Q4

REPORT INFORMATION
  Report Type: 
  Country: US (occurrence: US)
  Receive Date: 20120926
  Receipt Date: 20120926
  Transmission Date: 20130627
  Serious: No
  Sender: FDA-Public Use
  Company Number: US-TEVA-357379USA

PATIENT
  Age: 69 Year
  Sex: Female
  Weight: 70.37 kg

DRUGS (1)
  1. QVAR [Suspect]
     Indication: ASTHMA
     Dates: start: 2007

REACTIONS (3)
  - Asthma [Recovered/Resolved]
  - Throat irritation [Recovered/Resolved]
  - Chest discomfort [Not Recovered/Not Resolved]
